FAERS Safety Report 4405868-0 (Version None)
Quarter: 2004Q3

REPORT INFORMATION
  Report Type: 
  Country: None (occurrence: None)
  Receive Date: 20040723
  Receipt Date: 20040122
  Transmission Date: 20050211
  Serious: No
  Sender: FDA-Public Use
  Company Number: US-GLAXOSMITHKLINE-A0494696A

PATIENT
  Age: 67 Year
  Sex: Female

DRUGS (9)
  1. AVANDIA [Suspect]
     Dosage: 4MG PER DAY
     Route: 048
     Dates: start: 20030301, end: 20031001
  2. KETOPROFEN [Concomitant]
     Dosage: 75MG PER DAY
  3. LIPITOR [Concomitant]
     Dosage: 20MG PER DAY
  4. EFFEXOR XR [Concomitant]
  5. FUROSEMIDE [Concomitant]
  6. ZAROXOLYN [Concomitant]
  7. MULTIVITAMIN [Concomitant]
  8. HUMULIN N [Concomitant]
  9. HUMULIN R [Concomitant]

REACTIONS (3)
  - DYSPNOEA [None]
  - FLUID RETENTION [None]
  - WEIGHT INCREASED [None]
